FAERS Safety Report 14739370 (Version 2)
Quarter: 2018Q2

REPORT INFORMATION
  Report Type: Spontaneous
  Country: US (occurrence: US)
  Receive Date: 20180410
  Receipt Date: 20180517
  Transmission Date: 20180711
  Serious: No
  Sender: FDA-Public Use
  Company Number: PHEH2018US013146

PATIENT
  Sex: Female

DRUGS (1)
  1. MOXEZA [Suspect]
     Active Substance: MOXIFLOXACIN HYDROCHLORIDE
     Indication: PRODUCT USED FOR UNKNOWN INDICATION
     Route: 047

REACTIONS (3)
  - Product quality issue [Unknown]
  - Product use complaint [Unknown]
  - Eye irritation [Not Recovered/Not Resolved]
